FAERS Safety Report 7571871-5 (Version None)
Quarter: 2011Q2

REPORT INFORMATION
  Report Type: 
  Country: None (occurrence: None)
  Receive Date: 20110624
  Receipt Date: 20100520
  Transmission Date: 20111010
  Serious: No
  Sender: FDA-Public Use
  Company Number: A0860631A

PATIENT
  Age: 13 Year
  Sex: Female

DRUGS (2)
  1. VERAMYST [Suspect]
     Route: 045
     Dates: start: 20100517, end: 20100520
  2. QVAR 40 [Concomitant]

REACTIONS (1)
  - PRURITUS [None]
